FAERS Safety Report 5256055-8 (Version None)
Quarter: 2007Q1

REPORT INFORMATION
  Report Type: 
  Country: None (occurrence: None)
  Receive Date: 20070302
  Receipt Date: 20070302
  Transmission Date: 20070707
  Serious: Yes (Life-Threatening, Hospitalization, Disabling)
  Sender: FDA-Public Use
  Company Number: None

PATIENT
  Age: 5 Day
  Sex: Male
  Weight: 2.4494 kg

DRUGS (1)
  1. ATENOLOL [Suspect]
     Indication: HYPERTENSION
     Dosage: 25 MG - 100 MG   EVERYDAY  P.O.
     Route: 048
     Dates: start: 20011105, end: 20011117

REACTIONS (7)
  - BLOOD GLUCOSE DECREASED [None]
  - CEREBRAL INFARCTION [None]
  - CONVULSION NEONATAL [None]
  - DEVELOPMENTAL DELAY [None]
  - DRUG EXPOSURE VIA BREAST MILK [None]
  - NEONATAL DISORDER [None]
  - VISUAL DISTURBANCE [None]
